FAERS Safety Report 9988159 (Version 2)
Quarter: 2014Q1

REPORT INFORMATION
  Report Type: Spontaneous
  Country: US (occurrence: US)
  Receive Date: 20140308
  Receipt Date: 20140308
  Transmission Date: 20141002
  Serious: Yes (Other)
  Sender: FDA-Public Use
  Company Number: US-GE HEALTHCARE MEDICAL DIAGNOSTICS-OSCN-PR-0811S-0631

PATIENT
  Sex: Female

DRUGS (49)
  1. OMNISCAN [Suspect]
     Indication: PRODUCT USED FOR UNKNOWN INDICATION
     Route: 065
     Dates: start: 20001212, end: 20001212
  2. OMNISCAN [Suspect]
     Route: 065
     Dates: start: 20010130, end: 20010130
  3. MAGNEVIST [Suspect]
     Indication: PRODUCT USED FOR UNKNOWN INDICATION
     Route: 065
     Dates: start: 20041023, end: 20041023
  4. MAGNEVIST [Suspect]
     Route: 065
     Dates: start: 20041024, end: 20041024
  5. OPTIMARK [Suspect]
     Indication: PRODUCT USED FOR UNKNOWN INDICATION
     Route: 065
     Dates: start: 20040611, end: 20040611
  6. HUMALOG [Concomitant]
     Indication: PRODUCT USED FOR UNKNOWN INDICATION
  7. LANTUS [Concomitant]
     Indication: PRODUCT USED FOR UNKNOWN INDICATION
  8. LONITEN [Concomitant]
     Indication: PRODUCT USED FOR UNKNOWN INDICATION
  9. LEXAPRO [Concomitant]
     Indication: PRODUCT USED FOR UNKNOWN INDICATION
  10. COUMADIN [Concomitant]
     Indication: PRODUCT USED FOR UNKNOWN INDICATION
  11. IRON SUPPLEMENT [Concomitant]
     Indication: PRODUCT USED FOR UNKNOWN INDICATION
  12. OXYCODONE [Concomitant]
     Indication: PRODUCT USED FOR UNKNOWN INDICATION
  13. NORVASC [Concomitant]
     Indication: PRODUCT USED FOR UNKNOWN INDICATION
  14. PLAVIX [Concomitant]
     Indication: PRODUCT USED FOR UNKNOWN INDICATION
  15. VASOTEC [Concomitant]
     Indication: PRODUCT USED FOR UNKNOWN INDICATION
  16. COREG [Concomitant]
     Indication: PRODUCT USED FOR UNKNOWN INDICATION
  17. VALIUM [Concomitant]
     Indication: PRODUCT USED FOR UNKNOWN INDICATION
  18. PHOSLO [Concomitant]
     Indication: PRODUCT USED FOR UNKNOWN INDICATION
  19. ANTIBIOTICS [Concomitant]
     Indication: PRODUCT USED FOR UNKNOWN INDICATION
  20. DILAUDID [Concomitant]
     Indication: PRODUCT USED FOR UNKNOWN INDICATION
  21. INSULIN [Concomitant]
     Indication: PRODUCT USED FOR UNKNOWN INDICATION
  22. ELAVIL [Concomitant]
     Indication: PRODUCT USED FOR UNKNOWN INDICATION
  23. CATAPRESS [Concomitant]
     Indication: PRODUCT USED FOR UNKNOWN INDICATION
  24. ANTIVERT [Concomitant]
     Indication: PRODUCT USED FOR UNKNOWN INDICATION
  25. NORCO [Concomitant]
     Indication: PRODUCT USED FOR UNKNOWN INDICATION
  26. ZOLOFT [Concomitant]
     Indication: PRODUCT USED FOR UNKNOWN INDICATION
  27. AMBIEN [Concomitant]
     Indication: PRODUCT USED FOR UNKNOWN INDICATION
  28. CLONAZEPAM [Concomitant]
     Indication: PRODUCT USED FOR UNKNOWN INDICATION
  29. PHENERGAN [Concomitant]
     Indication: PRODUCT USED FOR UNKNOWN INDICATION
  30. FOLIC ACID [Concomitant]
     Indication: PRODUCT USED FOR UNKNOWN INDICATION
  31. ISORDIL [Concomitant]
     Indication: PRODUCT USED FOR UNKNOWN INDICATION
  32. ALU-CAP [Concomitant]
     Indication: PRODUCT USED FOR UNKNOWN INDICATION
  33. NEPHROVITE [Concomitant]
     Indication: PRODUCT USED FOR UNKNOWN INDICATION
  34. COMBIVENT [Concomitant]
     Indication: PRODUCT USED FOR UNKNOWN INDICATION
  35. QUININE [Concomitant]
     Indication: PRODUCT USED FOR UNKNOWN INDICATION
  36. NEURONTIN [Concomitant]
     Indication: PRODUCT USED FOR UNKNOWN INDICATION
  37. DURAGESIC [Concomitant]
     Indication: PRODUCT USED FOR UNKNOWN INDICATION
  38. PREVACID [Concomitant]
     Indication: PRODUCT USED FOR UNKNOWN INDICATION
  39. ZESTRIL [Concomitant]
     Indication: PRODUCT USED FOR UNKNOWN INDICATION
  40. LOPRESSOR [Concomitant]
     Indication: PRODUCT USED FOR UNKNOWN INDICATION
  41. XANAX [Concomitant]
     Indication: PRODUCT USED FOR UNKNOWN INDICATION
  42. MYLANTA [Concomitant]
     Indication: PRODUCT USED FOR UNKNOWN INDICATION
  43. ATROVENT [Concomitant]
     Indication: PRODUCT USED FOR UNKNOWN INDICATION
  44. ALBUTEROL [Concomitant]
     Indication: PRODUCT USED FOR UNKNOWN INDICATION
  45. NYSTATIN [Concomitant]
     Indication: PRODUCT USED FOR UNKNOWN INDICATION
  46. RENEGEL [Concomitant]
     Indication: PRODUCT USED FOR UNKNOWN INDICATION
  47. IMDUR [Concomitant]
     Indication: PRODUCT USED FOR UNKNOWN INDICATION
  48. COZAAR [Concomitant]
     Indication: PRODUCT USED FOR UNKNOWN INDICATION
  49. NITRO [Concomitant]
     Indication: PRODUCT USED FOR UNKNOWN INDICATION

REACTIONS (1)
  - Nephrogenic systemic fibrosis [Not Recovered/Not Resolved]
